FAERS Safety Report 25847852 (Version 1)
Quarter: 2025Q3

REPORT INFORMATION
  Report Type: Spontaneous
  Country: EU (occurrence: EU)
  Receive Date: 20250925
  Receipt Date: 20250925
  Transmission Date: 20251020
  Serious: Yes (Other)
  Sender: MYLAN
  Company Number: EU-EMB-M202402683-1

PATIENT
  Sex: Male
  Weight: 2.42 kg

DRUGS (24)
  1. SERTRALINE [Suspect]
     Active Substance: SERTRALINE HYDROCHLORIDE
     Indication: Depression
     Dosage: 50 MILLIGRAM, QD
     Dates: start: 202401, end: 202410
  2. SERTRALINE [Suspect]
     Active Substance: SERTRALINE HYDROCHLORIDE
     Dosage: 50 MILLIGRAM, QD
     Dates: start: 202401, end: 202410
  3. SERTRALINE [Suspect]
     Active Substance: SERTRALINE HYDROCHLORIDE
     Dosage: 50 MILLIGRAM, QD
     Route: 064
     Dates: start: 202401, end: 202410
  4. SERTRALINE [Suspect]
     Active Substance: SERTRALINE HYDROCHLORIDE
     Dosage: 50 MILLIGRAM, QD
     Route: 064
     Dates: start: 202401, end: 202410
  5. SERTRALINE [Suspect]
     Active Substance: SERTRALINE HYDROCHLORIDE
     Dosage: 50 MILLIGRAM, QD
     Dates: start: 202401, end: 202410
  6. SERTRALINE [Suspect]
     Active Substance: SERTRALINE HYDROCHLORIDE
     Dosage: 50 MILLIGRAM, QD
     Dates: start: 202401, end: 202410
  7. SERTRALINE [Suspect]
     Active Substance: SERTRALINE HYDROCHLORIDE
     Dosage: 50 MILLIGRAM, QD
     Route: 064
     Dates: start: 202401, end: 202410
  8. SERTRALINE [Suspect]
     Active Substance: SERTRALINE HYDROCHLORIDE
     Dosage: 50 MILLIGRAM, QD
     Route: 064
     Dates: start: 202401, end: 202410
  9. DUPIXENT [Concomitant]
     Active Substance: DUPILUMAB
     Indication: Chronic sinusitis
     Dosage: 300 MILLIGRAM, Q2W (UNTIL GW 12)
  10. DUPIXENT [Concomitant]
     Active Substance: DUPILUMAB
     Dosage: 300 MILLIGRAM, Q2W (UNTIL GW 12)
  11. DUPIXENT [Concomitant]
     Active Substance: DUPILUMAB
     Dosage: 300 MILLIGRAM, Q2W (UNTIL GW 12)
     Route: 064
  12. DUPIXENT [Concomitant]
     Active Substance: DUPILUMAB
     Dosage: 300 MILLIGRAM, Q2W (UNTIL GW 12)
     Route: 064
  13. DUPIXENT [Concomitant]
     Active Substance: DUPILUMAB
     Dosage: 300 MILLIGRAM, Q2W (UNTIL GW 12)
  14. DUPIXENT [Concomitant]
     Active Substance: DUPILUMAB
     Dosage: 300 MILLIGRAM, Q2W (UNTIL GW 12)
  15. DUPIXENT [Concomitant]
     Active Substance: DUPILUMAB
     Dosage: 300 MILLIGRAM, Q2W (UNTIL GW 12)
     Route: 064
  16. DUPIXENT [Concomitant]
     Active Substance: DUPILUMAB
     Dosage: 300 MILLIGRAM, Q2W (UNTIL GW 12)
     Route: 064
  17. MOMETASONE FUROATE [Concomitant]
     Active Substance: MOMETASONE FUROATE
     Indication: Chronic sinusitis
     Dosage: QD, UNTIL GW 7
     Dates: start: 202401, end: 202403
  18. MOMETASONE FUROATE [Concomitant]
     Active Substance: MOMETASONE FUROATE
     Dosage: QD, UNTIL GW 7
     Dates: start: 202401, end: 202403
  19. MOMETASONE FUROATE [Concomitant]
     Active Substance: MOMETASONE FUROATE
     Dosage: QD, UNTIL GW 7
     Route: 064
     Dates: start: 202401, end: 202403
  20. MOMETASONE FUROATE [Concomitant]
     Active Substance: MOMETASONE FUROATE
     Dosage: QD, UNTIL GW 7
     Route: 064
     Dates: start: 202401, end: 202403
  21. MOMETASONE FUROATE [Concomitant]
     Active Substance: MOMETASONE FUROATE
     Dosage: QD, UNTIL GW 7
     Dates: start: 202401, end: 202403
  22. MOMETASONE FUROATE [Concomitant]
     Active Substance: MOMETASONE FUROATE
     Dosage: QD, UNTIL GW 7
     Dates: start: 202401, end: 202403
  23. MOMETASONE FUROATE [Concomitant]
     Active Substance: MOMETASONE FUROATE
     Dosage: QD, UNTIL GW 7
     Route: 064
     Dates: start: 202401, end: 202403
  24. MOMETASONE FUROATE [Concomitant]
     Active Substance: MOMETASONE FUROATE
     Dosage: QD, UNTIL GW 7
     Route: 064
     Dates: start: 202401, end: 202403

REACTIONS (2)
  - Small for dates baby [Recovered/Resolved]
  - Foetal exposure during pregnancy [Unknown]

NARRATIVE: CASE EVENT DATE: 20241001
